FAERS Safety Report 21406002 (Version 1)
Quarter: 2022Q4

REPORT INFORMATION
  Report Type: Spontaneous
  Country: GR (occurrence: GR)
  Receive Date: 20221004
  Receipt Date: 20221004
  Transmission Date: 20230112
  Serious: Yes (Other)
  Sender: FDA-Public Use
  Company Number: GR-SUN PHARMACEUTICAL INDUSTRIES LTD-2022R1-357267

PATIENT
  Age: 21 Year

DRUGS (2)
  1. GEMFIBROZIL [Suspect]
     Active Substance: GEMFIBROZIL
     Indication: Familial hypertriglyceridaemia
     Dosage: 1800 MILLIGRAM, DAILY
     Route: 065
     Dates: start: 202003
  2. VOLANESORSEN [Concomitant]
     Active Substance: VOLANESORSEN
     Indication: Familial hypertriglyceridaemia
     Dosage: 285 MILLIGRAM, WEEKLY
     Route: 065
     Dates: start: 202003

REACTIONS (2)
  - Treatment noncompliance [Unknown]
  - Therapeutic response decreased [Unknown]
